FAERS Safety Report 6677808-5 (Version None)
Quarter: 2010Q2

REPORT INFORMATION
  Report Type: 
  Country: None (occurrence: None)
  Receive Date: 20100412
  Receipt Date: 20100305
  Transmission Date: 20101027
  Serious: Yes (Hospitalization)
  Sender: FDA-Public Use
  Company Number: US-ALEXION-A201000161

PATIENT
  Sex: Male

DRUGS (7)
  1. SOLIRIS [Suspect]
     Indication: PAROXYSMAL NOCTURNAL HAEMOGLOBINURIA
     Dosage: 600 MG, QW
     Route: 042
     Dates: start: 20070425
  2. SOLIRIS [Suspect]
     Dosage: 900 MG, Q2W
     Route: 042
  3. PREDNISOLONE [Concomitant]
     Dosage: 5 MG, QD
     Route: 048
  4. METOPROLOL TARTRATE [Concomitant]
     Dosage: 12.5 MG, QD
     Route: 048
  5. ASPIRIN [Concomitant]
     Dosage: 81 MG, QD
     Route: 048
  6. IRON [Concomitant]
     Dosage: UNK, QD
     Route: 048
  7. TESTOSTERONE [Concomitant]
     Dosage: 1/MONTH, INJECTION

REACTIONS (4)
  - ABDOMINAL PAIN [None]
  - ATRIAL FIBRILLATION [None]
  - PALPITATIONS [None]
  - PANCREATOLITHIASIS [None]
